FAERS Safety Report 4551090-7 (Version None)
Quarter: 2005Q1

REPORT INFORMATION
  Report Type: 
  Country: None (occurrence: None)
  Receive Date: 20050113
  Receipt Date: 20050104
  Transmission Date: 20050727
  Serious: Yes (Other)
  Sender: FDA-Public Use
  Company Number: PHFR2005GB00449

PATIENT
  Age: 48 Year
  Sex: Male

DRUGS (2)
  1. IBUPROFEN [Concomitant]
     Route: 065
  2. DICLOFENAC [Suspect]
     Indication: ARTHRALGIA
     Dosage: 100 MG/DAY
     Route: 048
     Dates: start: 20041209, end: 20041209

REACTIONS (3)
  - DIPLOPIA [None]
  - DIZZINESS [None]
  - STOMACH DISCOMFORT [None]
